FAERS Safety Report 11821063 (Version 1)
Quarter: 2015Q4

REPORT INFORMATION
  Report Type: Spontaneous
  Country: US (occurrence: US)
  Receive Date: 20151210
  Receipt Date: 20151210
  Transmission Date: 20160305
  Serious: No
  Sender: FDA-Public Use
  Company Number: US-JNJFOC-20150711696

PATIENT
  Age: 85 Year
  Sex: Female

DRUGS (7)
  1. DOCUSATE SODIUM. [Concomitant]
     Active Substance: DOCUSATE SODIUM
  2. CALCIUM CARBONATE. [Concomitant]
     Active Substance: CALCIUM CARBONATE
  3. RESTORIL [Concomitant]
     Active Substance: TEMAZEPAM
  4. VITAMIN A [Concomitant]
     Active Substance: VITAMIN A
  5. METAMUCIL [Concomitant]
     Active Substance: PLANTAGO SEED
  6. IMBRUVICA [Suspect]
     Active Substance: IBRUTINIB
     Indication: WALDENSTROM^S MACROGLOBULINAEMIA
     Route: 048
     Dates: start: 20150602
  7. IBUPROFEN. [Concomitant]
     Active Substance: IBUPROFEN

REACTIONS (3)
  - Pain [Unknown]
  - Herpes zoster [Recovered/Resolved]
  - Blood immunoglobulin M increased [Unknown]

NARRATIVE: CASE EVENT DATE: 2015
